FAERS Safety Report 6639257-5 (Version None)
Quarter: 2010Q1

REPORT INFORMATION
  Report Type: 
  Country: None (occurrence: None)
  Receive Date: 20100315
  Receipt Date: 20100301
  Transmission Date: 20100710
  Serious: Yes (Death, Hospitalization, Disabling)
  Sender: FDA-Public Use
  Company Number: 2009AL004758

PATIENT
  Age: 85 Year
  Sex: Female

DRUGS (39)
  1. METOCLOPRAMIDE [Suspect]
     Indication: REFLUX OESOPHAGITIS
     Dosage: 10 MG; QID; PO
     Route: 048
     Dates: start: 20020724, end: 20070504
  2. COUMADIN [Concomitant]
  3. ALLEGRA [Concomitant]
  4. TIAZAC [Concomitant]
  5. NITROGLYCERIN [Concomitant]
  6. CELEBREX [Concomitant]
  7. PREVACID [Concomitant]
  8. NEXIUM [Concomitant]
  9. LIPITOR [Concomitant]
  10. DYAZIDE [Concomitant]
  11. ZOLOFT [Concomitant]
  12. DIPHENHYDRAMINE HYDROCHLORIDE [Concomitant]
  13. NORCO [Concomitant]
  14. IMODIUM A-D [Concomitant]
  15. FUROSEMIDE [Concomitant]
  16. SINGULAIR [Concomitant]
  17. ACETYLSALICYLIC ACID [Concomitant]
  18. M.V.I. [Concomitant]
  19. TYLENOL (CAPLET) [Concomitant]
  20. FERROUS SULFATE TAB [Concomitant]
  21. K-TAB [Concomitant]
  22. GLUCOSAMINE W/CHONDROITIN [Concomitant]
  23. ASTELIN [Concomitant]
  24. ZYRTEC [Concomitant]
  25. NASAREL [Concomitant]
  26. GABAPENTIN [Concomitant]
  27. ZOCOR [Concomitant]
  28. BEXTRA [Concomitant]
  29. PROTONIX [Concomitant]
  30. NABUMETONE [Concomitant]
  31. TRAZODONE [Concomitant]
  32. PROPOXYPHENE NAPSYLATE W/ ACETAMINOPHEN [Concomitant]
  33. NAPROXEN [Concomitant]
  34. DIOVAN HCT [Concomitant]
  35. PRILOSEC [Concomitant]
  36. COMBIVENT [Concomitant]
  37. PROMETHAZINE [Concomitant]
  38. VYTORIN [Concomitant]
  39. FLONASE [Concomitant]

REACTIONS (32)
  - ANHEDONIA [None]
  - ASTHMA [None]
  - CARDIAC FAILURE CONGESTIVE [None]
  - CHEST PAIN [None]
  - CONSTIPATION [None]
  - DEPRESSION [None]
  - ECONOMIC PROBLEM [None]
  - EXTRAPYRAMIDAL DISORDER [None]
  - GASTRITIS [None]
  - GASTROOESOPHAGEAL REFLUX DISEASE [None]
  - INFLUENZA LIKE ILLNESS [None]
  - INSOMNIA [None]
  - LARYNGITIS [None]
  - MALAISE [None]
  - MOANING [None]
  - MULTIPLE INJURIES [None]
  - NERVOUS SYSTEM DISORDER [None]
  - NON-CARDIAC CHEST PAIN [None]
  - OEDEMA [None]
  - OESOPHAGITIS [None]
  - OSTEOARTHRITIS [None]
  - PAIN [None]
  - POSTNASAL DRIP [None]
  - RHINITIS ALLERGIC [None]
  - SINUSITIS [None]
  - SKIN LACERATION [None]
  - SKIN ULCER [None]
  - TARDIVE DYSKINESIA [None]
  - VENOUS INSUFFICIENCY [None]
  - WEIGHT DECREASED [None]
  - WEIGHT INCREASED [None]
  - WHEEZING [None]
